FAERS Safety Report 9796217 (Version 1)
Quarter: 2014Q1

REPORT INFORMATION
  Report Type: Spontaneous
  Country: US (occurrence: US)
  Receive Date: 20140103
  Receipt Date: 20140103
  Transmission Date: 20141002
  Serious: Yes (Other)
  Sender: FDA-Public Use
  Company Number: US-PFIZER INC-2013374580

PATIENT
  Age: 46 Year
  Sex: Female
  Weight: 49.89 kg

DRUGS (2)
  1. NORVASC [Suspect]
     Dosage: 5 MG, 2X/DAY
     Dates: start: 201306
  2. BABY ASPIRIN [Concomitant]
     Indication: CARDIAC DISORDER
     Dosage: 81 MG, 1X/DAY

REACTIONS (1)
  - Arterial occlusive disease [Unknown]
